FAERS Safety Report 9193933 (Version 1)
Quarter: 2013Q1

REPORT INFORMATION
  Report Type: Spontaneous
  Country: BE (occurrence: BE)
  Receive Date: 20130327
  Receipt Date: 20130327
  Transmission Date: 20140127
  Serious: Yes (Death, Other)
  Sender: FDA-Public Use
  Company Number: BE-TEVA-393109ISR

PATIENT
  Age: 38 Year
  Sex: Female

DRUGS (1)
  1. VENLAFAXINE [Suspect]
     Indication: OVERDOSE
     Dosage: 4200MG
     Route: 048

REACTIONS (13)
  - Cardiac failure acute [Fatal]
  - Overdose [Fatal]
  - Renal failure acute [Unknown]
  - Rhabdomyolysis [Unknown]
  - Liver injury [Unknown]
  - Serotonin syndrome [Unknown]
  - Pneumococcal sepsis [Unknown]
  - Pneumonia [Unknown]
  - Acute respiratory distress syndrome [Unknown]
  - Hypoxia [Fatal]
  - Electrocardiogram change [Not Recovered/Not Resolved]
  - Ventricular tachycardia [Unknown]
  - Atrial fibrillation [Unknown]
